FAERS Safety Report 14538661 (Version 2)
Quarter: 2018Q1

REPORT INFORMATION
  Report Type: Spontaneous
  Country: TR (occurrence: TR)
  Receive Date: 20180216
  Receipt Date: 20180228
  Transmission Date: 20180509
  Serious: Yes (Other)
  Sender: FDA-Public Use
  Company Number: TR-LUPIN PHARMACEUTICALS INC.-2018-00816

PATIENT
  Age: 2 Month

DRUGS (2)
  1. SERTRALINE [Suspect]
     Active Substance: SERTRALINE HYDROCHLORIDE
     Indication: MAJOR DEPRESSION
     Dosage: UNK
     Route: 063
  2. PAROXETINE. [Suspect]
     Active Substance: PAROXETINE
     Indication: MAJOR DEPRESSION
     Dosage: UNK
     Route: 063

REACTIONS (5)
  - Insomnia [Recovered/Resolved]
  - Restlessness [Recovered/Resolved]
  - Drug intolerance [Recovered/Resolved]
  - Exposure via breast milk [Unknown]
  - Constipation [Recovered/Resolved]
